FAERS Safety Report 16642131 (Version 3)
Quarter: 2019Q3

REPORT INFORMATION
  Report Type: Spontaneous
  Country: US (occurrence: US)
  Receive Date: 20190729
  Receipt Date: 20190917
  Transmission Date: 20191004
  Serious: Yes (Other)
  Sender: FDA-Public Use
  Company Number: US-SA-2019SA203835

PATIENT
  Age: 45 Year
  Sex: Female

DRUGS (2)
  1. KEVZARA [Suspect]
     Active Substance: SARILUMAB
     Indication: RHEUMATOID ARTHRITIS
     Dosage: 200 MG, QOW
     Route: 058
     Dates: start: 20190617
  2. KEVZARA [Suspect]
     Active Substance: SARILUMAB
     Indication: OSTEOARTHRITIS

REACTIONS (7)
  - Musculoskeletal disorder [Unknown]
  - Gait disturbance [Unknown]
  - Arthralgia [Unknown]
  - Arthritis [Unknown]
  - Arthralgia [Unknown]
  - Joint swelling [Unknown]
  - Rheumatoid arthritis [Unknown]

NARRATIVE: CASE EVENT DATE: 2019
